FAERS Safety Report 18350797 (Version 2)
Quarter: 2021Q1

REPORT INFORMATION
  Report Type: Spontaneous
  Country: US (occurrence: US)
  Receive Date: 20201006
  Receipt Date: 20210108
  Transmission Date: 20210419
  Serious: No
  Sender: FDA-Public Use
  Company Number: US-NOVOPROD-750431

PATIENT
  Age: 82 Year
  Sex: Male

DRUGS (1)
  1. RYBELSUS [Suspect]
     Active Substance: SEMAGLUTIDE
     Indication: TYPE 2 DIABETES MELLITUS
     Dosage: 3 MG
     Route: 048
     Dates: start: 20200708, end: 20200822

REACTIONS (4)
  - Urticaria [Recovering/Resolving]
  - Rash [Recovering/Resolving]
  - Blister [Recovering/Resolving]
  - Peripheral swelling [Recovering/Resolving]

NARRATIVE: CASE EVENT DATE: 2020
